FAERS Safety Report 6156373-5 (Version None)
Quarter: 2009Q2

REPORT INFORMATION
  Report Type: 
  Country: None (occurrence: None)
  Receive Date: 20090416
  Receipt Date: 20070604
  Transmission Date: 20091009
  Serious: Yes (Hospitalization, Disabling, Other)
  Sender: FDA-Public Use
  Company Number: US-ASTRAZENECA-2006UW07422

PATIENT
  Age: 14103 Day
  Sex: Male
  Weight: 154.2 kg

DRUGS (7)
  1. SEROQUEL [Suspect]
     Indication: BIPOLAR DISORDER
     Route: 048
     Dates: start: 20001130, end: 20020515
  2. SEROQUEL [Suspect]
     Indication: DEPRESSION
     Route: 048
     Dates: start: 20001130, end: 20020515
  3. RISPERDAL [Suspect]
  4. ZYPREXA [Suspect]
  5. PHENOBARBITAL [Concomitant]
  6. TEGRETOL [Concomitant]
  7. CLONAZEPAM [Concomitant]

REACTIONS (16)
  - BIPOLAR I DISORDER [None]
  - CANDIDIASIS [None]
  - CONVULSION [None]
  - DIABETES MELLITUS [None]
  - DIABETIC COMA [None]
  - DIABETIC KETOACIDOSIS [None]
  - DRUG ABUSER [None]
  - EROSIVE OESOPHAGITIS [None]
  - HALLUCINATIONS, MIXED [None]
  - NEUROLEPTIC MALIGNANT SYNDROME [None]
  - NEUROPATHY PERIPHERAL [None]
  - OSTEOARTHRITIS [None]
  - PANCREATITIS [None]
  - PILONIDAL CYST [None]
  - SCHIZOAFFECTIVE DISORDER [None]
  - SUICIDAL IDEATION [None]
